FAERS Safety Report 8609399-3 (Version None)
Quarter: 2012Q3

REPORT INFORMATION
  Report Type: 
  Country: None (occurrence: None)
  Receive Date: 20120821
  Receipt Date: 20120813
  Transmission Date: 20120928
  Serious: Yes (Other)
  Sender: FDA-Public Use
  Company Number: US-BAYER-2012-076696

PATIENT
  Age: 84 Year
  Sex: Male
  Weight: 94.35 kg

DRUGS (12)
  1. DIURETICS [Suspect]
     Indication: PULMONARY OEDEMA
     Dates: start: 20120714
  2. FLOMAX [Concomitant]
  3. DIURETICS [Suspect]
     Indication: FLUID RETENTION
     Dates: start: 20120714
  4. DITROPAN [Concomitant]
  5. XARELTO [Interacting]
     Indication: CEREBROVASCULAR ACCIDENT PROPHYLAXIS
     Dosage: 15 MG, QD
     Dates: start: 20120601, end: 20120722
  6. DIURETICS [Suspect]
     Indication: CARDIAC FAILURE
     Dates: start: 20120714
  7. XARELTO [Interacting]
     Indication: ATRIAL FIBRILLATION
  8. DITROPAN [Concomitant]
  9. BYSTOLIC [Concomitant]
     Indication: HYPERTENSION
     Dates: start: 20060101
  10. ASPIRIN [Suspect]
     Indication: CARDIAC DISORDER
     Dosage: 81 MG, QD
     Route: 048
  11. PROTONIX [Concomitant]
     Indication: DIARRHOEA
     Dosage: 40 MG, QD
     Route: 048
     Dates: start: 20120101
  12. MAGNESIUM OXIDE [Concomitant]

REACTIONS (6)
  - OEDEMA PERIPHERAL [None]
  - INAPPROPRIATE SCHEDULE OF DRUG ADMINISTRATION [None]
  - BLOOD URINE PRESENT [None]
  - GINGIVAL BLEEDING [None]
  - ABNORMAL LOSS OF WEIGHT [None]
  - HAEMORRHAGE [None]
